FAERS Safety Report 4488114-1 (Version None)
Quarter: 2004Q4

REPORT INFORMATION
  Report Type: 
  Country: None (occurrence: None)
  Receive Date: 20041028
  Receipt Date: 20040823
  Transmission Date: 20050328
  Serious: Yes (Hospitalization)
  Sender: FDA-Public Use
  Company Number: DE-ROCHE-378260

PATIENT
  Age: 51 Year
  Sex: Male
  Weight: 69 kg

DRUGS (42)
  1. DACLIZUMAB [Suspect]
     Route: 042
     Dates: start: 20040819, end: 20040819
  2. DACLIZUMAB [Suspect]
     Dosage: TOTAL OF FOUR DOSES.
     Route: 042
     Dates: start: 20040902, end: 20041012
  3. MYCOPHENOLATE MOFETIL [Suspect]
     Route: 048
     Dates: start: 20040819, end: 20040826
  4. MYCOPHENOLATE MOFETIL [Suspect]
     Dosage: 1000 MG + 500 MG.
     Route: 048
     Dates: start: 20040827, end: 20040827
  5. MYCOPHENOLATE MOFETIL [Suspect]
     Dosage: 500 MG + 2 X 750 MG
     Route: 048
     Dates: start: 20040828, end: 20040828
  6. MYCOPHENOLATE MOFETIL [Suspect]
     Route: 048
     Dates: start: 20040829
  7. MYCOPHENOLATE MOFETIL [Suspect]
     Route: 048
     Dates: start: 20040901, end: 20040901
  8. MYCOPHENOLATE MOFETIL [Suspect]
     Route: 048
     Dates: start: 20040902
  9. MYCOPHENOLATE MOFETIL [Suspect]
     Route: 048
     Dates: start: 20040909
  10. MYCOPHENOLATE MOFETIL [Suspect]
     Route: 048
     Dates: start: 20041005
  11. MYCOPHENOLATE MOFETIL [Suspect]
     Route: 048
     Dates: start: 20041013, end: 20041017
  12. SIROLIMUS [Suspect]
     Route: 048
     Dates: start: 20040819, end: 20040821
  13. SIROLIMUS [Suspect]
     Route: 048
     Dates: start: 20040822
  14. SIROLIMUS [Suspect]
     Route: 048
     Dates: start: 20040828
  15. SIROLIMUS [Suspect]
     Route: 048
     Dates: start: 20040904
  16. SIROLIMUS [Suspect]
     Route: 048
     Dates: start: 20040909
  17. SIROLIMUS [Suspect]
     Route: 048
     Dates: start: 20040927, end: 20040927
  18. SIROLIMUS [Suspect]
     Route: 048
     Dates: start: 20040928
  19. SIROLIMUS [Suspect]
     Route: 048
     Dates: start: 20041005, end: 20041013
  20. SIROLIMUS [Suspect]
     Route: 048
     Dates: start: 20041016, end: 20041017
  21. PREDNISOLONE [Suspect]
     Route: 042
     Dates: start: 20040822
  22. PREDNISOLONE [Suspect]
     Route: 042
     Dates: start: 20040819, end: 20040819
  23. PREDNISOLONE [Suspect]
     Route: 042
     Dates: start: 20040820
  24. PREDNISOLONE [Suspect]
     Route: 042
     Dates: start: 20040821
  25. PREDNISOLONE [Suspect]
     Route: 042
     Dates: start: 20040823
  26. PREDNISOLONE [Suspect]
     Route: 042
     Dates: start: 20040824
  27. PREDNISOLONE [Suspect]
     Route: 042
     Dates: start: 20040826
  28. PREDNISOLONE [Suspect]
     Route: 042
     Dates: start: 20040914
  29. PREDNISOLONE [Suspect]
     Route: 042
     Dates: start: 20040920
  30. PREDNISOLONE [Suspect]
     Route: 042
     Dates: start: 20040927
  31. PREDNISOLONE [Suspect]
     Route: 042
     Dates: start: 20041005, end: 20041008
  32. PREDNISOLONE [Suspect]
     Route: 042
     Dates: start: 20041008, end: 20041011
  33. PREDNISOLONE [Suspect]
     Route: 042
     Dates: start: 20041011
  34. ACETYLCYSTEINE [Concomitant]
     Dates: start: 20040819
  35. AMPHOTERICIN B [Concomitant]
     Dates: start: 20040819
  36. CEFUROXIM [Concomitant]
     Dates: start: 20040819
  37. DILTIAZEM [Concomitant]
     Dates: start: 20040819, end: 20040828
  38. FUROSEMIDE [Concomitant]
     Dates: start: 20040822
  39. METOPROLOL [Concomitant]
     Dates: start: 20040822
  40. URAPIDIL [Concomitant]
     Dates: start: 20040821, end: 20040903
  41. VALGANCICLOVIR [Concomitant]
     Dosage: STOPPED ON 04 SEP 2004 AND RESTARTED ON 05 SEP 2004.
     Dates: start: 20040820, end: 20041013
  42. ATORVASTATIN CALCIUM [Concomitant]
     Dates: start: 20041011

REACTIONS (5)
  - ANAEMIA [None]
  - ARTERIAL HAEMORRHAGE [None]
  - HAEMATOMA INFECTION [None]
  - PANCYTOPENIA [None]
  - PROCEDURAL SITE REACTION [None]
